FAERS Safety Report 18706468 (Version 1)
Quarter: 2021Q1

REPORT INFORMATION
  Report Type: Spontaneous
  Country: US (occurrence: US)
  Receive Date: 20210105
  Receipt Date: 20210105
  Transmission Date: 20210419
  Serious: Yes (Life-Threatening, Hospitalization)
  Sender: FDA-Public Use
  Company Number: None

PATIENT
  Age: 69 Year
  Sex: Male
  Weight: 122 kg

DRUGS (2)
  1. ENALAPRIL (ENALAPRIL MALEATE 20MG TAB) [Suspect]
     Active Substance: ENALAPRIL
     Indication: RENAL DISORDER PROPHYLAXIS
  2. ENALAPRIL (ENALAPRIL MALEATE 20MG TAB) [Suspect]
     Active Substance: ENALAPRIL
     Indication: HYPERTENSION
     Route: 048
     Dates: start: 20080611, end: 20150530

REACTIONS (4)
  - Swollen tongue [None]
  - Therapy cessation [None]
  - Angioedema [None]
  - Dyspnoea [None]

NARRATIVE: CASE EVENT DATE: 20150530
